FAERS Safety Report 9438027 (Version 1)
Quarter: 2013Q3

REPORT INFORMATION
  Report Type: Spontaneous
  Country: JP (occurrence: JP)
  Receive Date: 20130802
  Receipt Date: 20130802
  Transmission Date: 20140515
  Serious: Yes (Hospitalization)
  Sender: FDA-Public Use
  Company Number: JP-JNJFOC-20130705937

PATIENT
  Age: 79 Year
  Sex: Female
  Weight: 34 kg

DRUGS (18)
  1. REMICADE [Suspect]
     Indication: RHEUMATOID ARTHRITIS
     Dosage: DOSE WAS REPORTED AS 200 MG, 5TH DOSE
     Route: 042
     Dates: start: 20130301
  2. REMICADE [Suspect]
     Indication: RHEUMATOID ARTHRITIS
     Dosage: FIRST DOSE
     Route: 042
     Dates: start: 20121106
  3. REMICADE [Suspect]
     Indication: RHEUMATOID ARTHRITIS
     Dosage: SECOND DOSE
     Route: 042
     Dates: start: 20121122
  4. REMICADE [Suspect]
     Indication: RHEUMATOID ARTHRITIS
     Dosage: FOURTH DOSE
     Route: 042
     Dates: start: 20130201
  5. REMICADE [Suspect]
     Indication: RHEUMATOID ARTHRITIS
     Dosage: THIRD DOSE
     Route: 042
     Dates: start: 20121220
  6. REMICADE [Suspect]
     Indication: RHEUMATOID ARTHRITIS
     Dosage: SIXTH DOSE
     Route: 042
     Dates: start: 20130405
  7. METHOTREXATE [Suspect]
     Indication: RHEUMATOID ARTHRITIS
     Route: 048
     Dates: start: 20130221, end: 20130310
  8. METHOTREXATE [Suspect]
     Indication: RHEUMATOID ARTHRITIS
     Route: 048
     Dates: start: 20130328
  9. PROGRAF [Suspect]
     Indication: RHEUMATOID ARTHRITIS
     Route: 048
     Dates: start: 20130328, end: 20130409
  10. PROGRAF [Suspect]
     Indication: RHEUMATOID ARTHRITIS
     Route: 048
     Dates: start: 20130301, end: 20130311
  11. PROGRAF [Suspect]
     Indication: RHEUMATOID ARTHRITIS
     Route: 048
     Dates: start: 20130410
  12. EVISTA [Concomitant]
     Indication: OSTEOPOROSIS
     Route: 048
     Dates: start: 20130221
  13. CELECOX [Concomitant]
     Indication: RHEUMATOID ARTHRITIS
     Dosage: ALSO REPORTED AS 100 MG
     Route: 048
     Dates: start: 20130221
  14. CELECOX [Concomitant]
     Indication: RHEUMATOID ARTHRITIS
     Route: 048
  15. CALCIUM LACTATE [Concomitant]
     Indication: OSTEOPOROSIS
     Route: 048
     Dates: start: 20130221
  16. FOLIAMIN [Concomitant]
     Indication: RHEUMATOID ARTHRITIS
     Route: 048
     Dates: start: 20130221
  17. MINOPEN [Concomitant]
     Indication: RHEUMATOID ARTHRITIS
     Route: 048
     Dates: start: 20130221, end: 20130311
  18. TALION [Concomitant]
     Indication: HYPERSENSITIVITY
     Route: 048
     Dates: start: 20130221, end: 20130301

REACTIONS (4)
  - Bacteraemia [Recovered/Resolved]
  - Bursitis infective [Recovered/Resolved]
  - Decreased appetite [Recovering/Resolving]
  - Malaise [Recovering/Resolving]
